FAERS Safety Report 15724158 (Version 4)
Quarter: 2019Q2

REPORT INFORMATION
  Report Type: Spontaneous
  Country: US (occurrence: US)
  Receive Date: 20181214
  Receipt Date: 20190604
  Transmission Date: 20190711
  Serious: Yes (Hospitalization, Other)
  Sender: FDA-Public Use
  Company Number: US-PFIZER INC-2018515067

PATIENT
  Age: 55 Year
  Sex: Female
  Weight: 54 kg

DRUGS (2)
  1. VANCOMYCIN HCL [Suspect]
     Active Substance: VANCOMYCIN HYDROCHLORIDE
     Indication: SEPSIS
  2. VANCOMYCIN HCL [Suspect]
     Active Substance: VANCOMYCIN HYDROCHLORIDE
     Indication: INFECTION
     Dosage: SINGLE DOSE
     Route: 040
     Dates: start: 201502

REACTIONS (9)
  - Cardiac arrest [Recovered/Resolved with Sequelae]
  - Brain hypoxia [Recovered/Resolved with Sequelae]
  - Loss of consciousness [Unknown]
  - Hypotension [Unknown]
  - Incorrect route of product administration [Unknown]
  - Brain injury [Unknown]
  - Movement disorder [Unknown]
  - Aphasia [Unknown]
  - Coordination abnormal [Unknown]

NARRATIVE: CASE EVENT DATE: 201502
